FAERS Safety Report 4731272-1 (Version None)
Quarter: 2005Q3

REPORT INFORMATION
  Report Type: 
  Country: None (occurrence: None)
  Receive Date: 20050729
  Receipt Date: 20050729
  Transmission Date: 20060218
  Serious: Yes (Disabling)
  Sender: FDA-Public Use
  Company Number: None

PATIENT
  Sex: Female
  Weight: 67.1324 kg

DRUGS (4)
  1. PROMETRIUM [Suspect]
     Indication: MENOPAUSE
     Dosage: ?100 MG ONCE DAILY
     Dates: start: 20050501, end: 20021001
  2. LORAZEPAM [Concomitant]
  3. PAXIL [Concomitant]
  4. ESTRADIOL [Concomitant]

REACTIONS (9)
  - DEPRESSION [None]
  - EYE SWELLING [None]
  - FIBROMYALGIA [None]
  - FOOD ALLERGY [None]
  - GAIT DISTURBANCE [None]
  - SOMNOLENCE [None]
  - THINKING ABNORMAL [None]
  - TINNITUS [None]
  - TREMOR [None]
